FAERS Safety Report 7510829-9 (Version None)
Quarter: 2011Q2

REPORT INFORMATION
  Report Type: 
  Country: None (occurrence: None)
  Receive Date: 20110531
  Receipt Date: 20110519
  Transmission Date: 20111010
  Serious: No
  Sender: FDA-Public Use
  Company Number: US-BIOGENIDEC-2011BI005571

PATIENT
  Sex: Female

DRUGS (2)
  1. AMPYRA [Concomitant]
     Dates: start: 20110101
  2. TYSABRI [Suspect]
     Indication: MULTIPLE SCLEROSIS
     Route: 042
     Dates: start: 20091217

REACTIONS (3)
  - BACK PAIN [None]
  - WHITE BLOOD CELL COUNT INCREASED [None]
  - LUMBAR SPINAL STENOSIS [None]
